FAERS Safety Report 4359302-X (Version None)
Quarter: 2004Q2

REPORT INFORMATION
  Report Type: 
  Country: None (occurrence: None)
  Receive Date: 20040512
  Receipt Date: 20040422
  Transmission Date: 20050107
  Serious: Yes (Other)
  Sender: FDA-Public Use
  Company Number: CEL-2004-00760-ROC

PATIENT
  Sex: Female

DRUGS (3)
  1. IONAMIN [Suspect]
  2. FENFLURAMINE [Suspect]
     Dates: start: 19970101, end: 19970101
  3. PHENTERMINE [Suspect]
     Dates: start: 19970101, end: 19970101

REACTIONS (1)
  - PULMONARY HYPERTENSION [None]
